FAERS Safety Report 13541043 (Version 4)
Quarter: 2017Q3

REPORT INFORMATION
  Report Type: Spontaneous
  Country: US (occurrence: US)
  Receive Date: 20170512
  Receipt Date: 20170828
  Transmission Date: 20171127
  Serious: Yes (Other)
  Sender: FDA-Public Use
  Company Number: US-JNJFOC-20170506791

PATIENT
  Age: 58 Year
  Sex: Male
  Weight: 68.86 kg

DRUGS (7)
  1. ALLOPURINOL. [Concomitant]
     Active Substance: ALLOPURINOL
     Route: 048
     Dates: start: 20170304
  2. XARELTO [Suspect]
     Active Substance: RIVAROXABAN
     Indication: DEEP VEIN THROMBOSIS
     Dosage: DRUG START TIME: UNSPECIFIED TIME IN POSTMERIDIAN (PM)??DRUG STOP TIME: UNSPECIFIED TIME IN PM
     Route: 048
     Dates: start: 20170502, end: 20170518
  3. IMBRUVICA [Suspect]
     Active Substance: IBRUTINIB
     Indication: LEUKAEMIA
     Route: 048
     Dates: start: 20170304
  4. CENTRUM [Concomitant]
     Active Substance: VITAMINS
     Route: 048
     Dates: start: 20151214
  5. WARFARIN [Concomitant]
     Active Substance: WARFARIN
     Indication: DEEP VEIN THROMBOSIS
     Route: 065
  6. IMBRUVICA [Concomitant]
     Active Substance: IBRUTINIB
     Indication: CHRONIC LYMPHOCYTIC LEUKAEMIA
     Route: 048
     Dates: start: 20170304
  7. OXYCODONE [Concomitant]
     Active Substance: OXYCODONE
     Dosage: DOSAGE FREQUENCY: PRN Q 8 HOURS.
     Route: 065
     Dates: start: 20161024

REACTIONS (6)
  - Haematuria [Recovered/Resolved with Sequelae]
  - Petechiae [Unknown]
  - Deep vein thrombosis [Unknown]
  - Increased tendency to bruise [Unknown]
  - Drug ineffective [Unknown]
  - Blood urine present [Recovered/Resolved]

NARRATIVE: CASE EVENT DATE: 20170318
